FAERS Safety Report 19367991 (Version 1)
Quarter: 2021Q2

REPORT INFORMATION
  Report Type: Spontaneous
  Country: AR (occurrence: AR)
  Receive Date: 20210603
  Receipt Date: 20210603
  Transmission Date: 20210717
  Serious: Yes (Other)
  Sender: FDA-Public Use
  Company Number: NVSC2021AR122557

PATIENT
  Sex: Female

DRUGS (1)
  1. ULTIBRO BREEZHALER [Suspect]
     Active Substance: GLYCOPYRRONIUM\INDACATEROL
     Indication: CHRONIC OBSTRUCTIVE PULMONARY DISEASE
     Dosage: 1 DF, QD
     Route: 065
     Dates: start: 2010

REACTIONS (3)
  - Ill-defined disorder [Recovering/Resolving]
  - Balance disorder [Recovering/Resolving]
  - Heart rate increased [Recovering/Resolving]
